FAERS Safety Report 16945598 (Version 4)
Quarter: 2020Q1

REPORT INFORMATION
  Report Type: Report from Study
  Country: None (occurrence: NL)
  Receive Date: 20191022
  Receipt Date: 20200317
  Transmission Date: 20200409
  Serious: Yes (Other)
  Sender: FDA-Public Use
  Company Number: NL-ABBVIE-17P-114-1905161-00

PATIENT
  Age: 71 Year
  Sex: Male
  Weight: 63 kg

DRUGS (6)
  1. ROPINIROLE. [Concomitant]
     Active Substance: ROPINIROLE
     Indication: PRODUCT USED FOR UNKNOWN INDICATION
     Route: 065
     Dates: end: 2018
  2. DUODOPA [Suspect]
     Active Substance: CARBIDOPA\LEVODOPA
     Dosage: 16 HOUR ADMINISTRATION
     Route: 050
  3. DUODOPA [Suspect]
     Active Substance: CARBIDOPA\LEVODOPA
     Dosage: MD 5.5 CD 1.2 ED 1.0 16 HOUR ADMINISTRATION
     Route: 050
  4. ROPINIROLE. [Concomitant]
     Active Substance: ROPINIROLE
     Dosage: REDUCED
     Route: 065
     Dates: start: 2018
  5. LAXANS [Concomitant]
     Indication: ABNORMAL FAECES
  6. DUODOPA [Suspect]
     Active Substance: CARBIDOPA\LEVODOPA
     Indication: PARKINSON^S DISEASE
     Dosage: MD: 5.0, CD: 1.6, ED: 1.0
     Route: 050
     Dates: start: 20170109

REACTIONS (50)
  - Mobility decreased [Recovered/Resolved]
  - Therapeutic product effect variable [Recovered/Resolved]
  - Weight decreased [Unknown]
  - Tension [Not Recovered/Not Resolved]
  - Condition aggravated [Not Recovered/Not Resolved]
  - Dizziness [Not Recovered/Not Resolved]
  - Somnolence [Not Recovered/Not Resolved]
  - Staring [Recovered/Resolved]
  - Aphasia [Recovered/Resolved]
  - Unresponsive to stimuli [Not Recovered/Not Resolved]
  - Weight gain poor [Recovered/Resolved]
  - Stoma site erythema [Not Recovered/Not Resolved]
  - Dyskinesia [Not Recovered/Not Resolved]
  - Memory impairment [Not Recovered/Not Resolved]
  - Miosis [Recovered/Resolved]
  - Hypersomnia [Recovered/Resolved]
  - Therapeutic product effect delayed [Not Recovered/Not Resolved]
  - Petit mal epilepsy [Not Recovered/Not Resolved]
  - Gait disturbance [Not Recovered/Not Resolved]
  - Orthostatic hypotension [Not Recovered/Not Resolved]
  - Muscle rigidity [Not Recovered/Not Resolved]
  - Dyskinesia [Recovered/Resolved]
  - Insomnia [Recovered/Resolved]
  - Hypotension [Not Recovered/Not Resolved]
  - Muscle strain [Recovered/Resolved]
  - Fibroma [Not Recovered/Not Resolved]
  - Loss of consciousness [Not Recovered/Not Resolved]
  - Movement disorder [Not Recovered/Not Resolved]
  - On and off phenomenon [Not Recovered/Not Resolved]
  - Freezing phenomenon [Not Recovered/Not Resolved]
  - Hypokinesia [Not Recovered/Not Resolved]
  - Hallucination [Recovered/Resolved]
  - Abdominal distension [Not Recovered/Not Resolved]
  - Hallucination [Recovering/Resolving]
  - Stress [Not Recovered/Not Resolved]
  - Confusional state [Not Recovered/Not Resolved]
  - Fatigue [Not Recovered/Not Resolved]
  - Fall [Not Recovered/Not Resolved]
  - Pain [Not Recovered/Not Resolved]
  - Bowel movement irregularity [Not Recovered/Not Resolved]
  - Parkinson^s disease [Not Recovered/Not Resolved]
  - Staring [Not Recovered/Not Resolved]
  - Epilepsy [Recovered/Resolved]
  - Speech disorder [Not Recovered/Not Resolved]
  - Blood pressure abnormal [Unknown]
  - Paraesthesia [Not Recovered/Not Resolved]
  - Syncope [Not Recovered/Not Resolved]
  - Pneumonia [Not Recovered/Not Resolved]
  - Abnormal dreams [Not Recovered/Not Resolved]
  - Stoma site odour [Not Recovered/Not Resolved]

NARRATIVE: CASE EVENT DATE: 202003
